FAERS Safety Report 16805546 (Version 1)
Quarter: 2019Q3

REPORT INFORMATION
  Report Type: Report from Study
  Country: AR (occurrence: AR)
  Receive Date: 20190913
  Receipt Date: 20190913
  Transmission Date: 20191005
  Serious: Yes (Other)
  Sender: FDA-Public Use
  Company Number: AR-TEVA-2019-AR-1108016

PATIENT
  Sex: Female

DRUGS (1)
  1. COPAXONE [Suspect]
     Active Substance: GLATIRAMER ACETATE
     Indication: RELAPSING-REMITTING MULTIPLE SCLEROSIS
     Route: 065
     Dates: start: 20170227, end: 201812

REACTIONS (4)
  - Injection site necrosis [Recovered/Resolved]
  - Injection site pain [Recovered/Resolved]
  - Needle fatigue [Unknown]
  - Injection site induration [Recovered/Resolved]
